FAERS Safety Report 9121398 (Version 1)
Quarter: 2013Q1

REPORT INFORMATION
  Report Type: Spontaneous
  Country: US (occurrence: US)
  Receive Date: 20130225
  Receipt Date: 20130225
  Transmission Date: 20140127
  Serious: No
  Sender: FDA-Public Use
  Company Number: US-BAYER-2013-017648

PATIENT
  Age: 27 Year
  Sex: Male
  Weight: 91 kg

DRUGS (6)
  1. BETASERON [Suspect]
     Dosage: 0.25 MG, QOD
     Route: 058
  2. BETASERON [Suspect]
     Dosage: 3 MG, UNK
  3. PROPECIA [Concomitant]
     Dosage: 1 MG, UNK
  4. ALLEGRA [Concomitant]
     Dosage: 30 MG, UNK
  5. TYLENOL [PARACETAMOL] [Concomitant]
     Dosage: 325 MG, UNK
  6. OMEGA 3-6-9 [Concomitant]

REACTIONS (2)
  - Injection site pain [Unknown]
  - Injection site bruising [Unknown]
